FAERS Safety Report 24792485 (Version 2)
Quarter: 2025Q1

REPORT INFORMATION
  Report Type: Spontaneous
  Country: US (occurrence: US)
  Receive Date: 20241231
  Receipt Date: 20250122
  Transmission Date: 20250409
  Serious: No
  Sender: IPSEN BIOPHARMACEUTICALS, INC.
  Company Number: US-IPSEN Group, Research and Development-2024-26319

PATIENT
  Age: 5 Year
  Sex: Female

DRUGS (2)
  1. BYLVAY [Suspect]
     Active Substance: ODEVIXIBAT
     Indication: Cholangitis sclerosing
     Dosage: FOUR 200 MCG ORAL PELLETS WITH/OVER FOOD ONCE DAILY.
     Route: 048
     Dates: start: 20240621
  2. BYLVAY [Suspect]
     Active Substance: ODEVIXIBAT
     Indication: Off label use

REACTIONS (2)
  - Pruritus [Not Recovered/Not Resolved]
  - Off label use [Unknown]
